FAERS Safety Report 6059920-7 (Version None)
Quarter: 2009Q1

REPORT INFORMATION
  Report Type: 
  Country: None (occurrence: None)
  Receive Date: 20090130
  Receipt Date: 20090122
  Transmission Date: 20090719
  Serious: Yes (Hospitalization, Other)
  Sender: FDA-Public Use
  Company Number: US-ABBOTT-09P-163-0499334-00

PATIENT
  Age: 42 Year
  Sex: Female

DRUGS (17)
  1. RITONAVIR SOFT GELATIN CAPSULES [Suspect]
     Indication: HIV INFECTION
     Route: 048
     Dates: start: 20080805
  2. RITONAVIR SOFT GELATIN CAPSULES [Suspect]
     Dates: start: 20081106
  3. PREZISTA [Concomitant]
     Indication: HIV INFECTION
     Route: 048
     Dates: start: 20080805, end: 20080828
  4. PREZISTA [Concomitant]
     Dates: start: 20081106
  5. ETRAVIRINE [Concomitant]
     Indication: HIV INFECTION
     Route: 048
     Dates: start: 20080805, end: 20080911
  6. ETRAVIRINE [Concomitant]
     Dates: start: 20081106
  7. RALTEGRAVIR [Concomitant]
     Indication: HIV INFECTION
     Dates: start: 20080805
  8. RALTEGRAVIR [Concomitant]
     Dates: start: 20081106
  9. ZIDOVUDINE [Concomitant]
     Indication: HIV INFECTION
     Dates: start: 20080805
  10. ZIDOVUDINE [Concomitant]
     Dates: start: 20081106, end: 20081209
  11. TRUVADA [Concomitant]
     Indication: HIV INFECTION
     Dates: start: 20080805
  12. TRUVADA [Concomitant]
     Dates: start: 20081106
  13. DELSYM [Concomitant]
     Indication: COUGH
  14. DEXAMETHASONE [Concomitant]
     Indication: DRUG USE FOR UNKNOWN INDICATION
  15. COMPAZINE [Concomitant]
     Indication: DRUG USE FOR UNKNOWN INDICATION
  16. POTASSIUM CHLORIDE [Concomitant]
     Indication: DRUG USE FOR UNKNOWN INDICATION
  17. DESYREL [Concomitant]
     Indication: DRUG USE FOR UNKNOWN INDICATION

REACTIONS (20)
  - ANOREXIA [None]
  - ASTHENIA [None]
  - CHEILITIS [None]
  - DEPRESSION [None]
  - DIARRHOEA [None]
  - GASTRIC ULCER [None]
  - GASTROINTESTINAL DISORDER [None]
  - GASTROINTESTINAL MUCOSAL DISORDER [None]
  - HEPATOTOXICITY [None]
  - HIATUS HERNIA [None]
  - HYPERSENSITIVITY [None]
  - IMMUNE RECONSTITUTION SYNDROME [None]
  - OESOPHAGEAL CANDIDIASIS [None]
  - PANCREATITIS [None]
  - PANCYTOPENIA [None]
  - PNEUMONIA [None]
  - PYREXIA [None]
  - RASH [None]
  - TUBULOINTERSTITIAL NEPHRITIS [None]
  - WEIGHT DECREASED [None]
